FAERS Safety Report 6428833-0 (Version None)
Quarter: 2009Q4

REPORT INFORMATION
  Report Type: 
  Country: None (occurrence: None)
  Receive Date: 20091105
  Receipt Date: 20091025
  Transmission Date: 20100525
  Serious: Yes (Other)
  Sender: FDA-Public Use
  Company Number: CA-JNJFOC-20090808793

PATIENT
  Sex: Female

DRUGS (5)
  1. TRAMACET [Suspect]
     Dosage: 1 TABLET EVERY 4-6 HOURS
     Route: 048
  2. TRAMACET [Suspect]
     Indication: BACK PAIN
     Dosage: 1 TABLET EVERY 4-6 HOURS
     Route: 048
  3. NITRO SPRAY [Concomitant]
  4. STEROIDS NOS [Concomitant]
  5. ZOPICLONE [Concomitant]

REACTIONS (8)
  - ANGINA PECTORIS [None]
  - HEADACHE [None]
  - MYOCLONUS [None]
  - NAUSEA [None]
  - PARAESTHESIA [None]
  - RESTLESS LEGS SYNDROME [None]
  - VOMITING [None]
  - WITHDRAWAL SYNDROME [None]
